FAERS Safety Report 14827301 (Version 1)
Quarter: 2018Q2

REPORT INFORMATION
  Report Type: Spontaneous
  Country: FR (occurrence: FR)
  Receive Date: 20180430
  Receipt Date: 20180430
  Transmission Date: 20180711
  Serious: Yes (Other)
  Sender: FDA-Public Use
  Company Number: FR-009507513-1804FRA011838

PATIENT
  Age: 40 Year
  Sex: Male

DRUGS (1)
  1. PEMBROLIZUMAB. [Suspect]
     Active Substance: PEMBROLIZUMAB
     Indication: MALIGNANT MELANOMA STAGE III
     Dosage: UNK

REACTIONS (3)
  - Immune-mediated adverse reaction [Unknown]
  - Organising pneumonia [Unknown]
  - Pneumonitis [Unknown]
